FAERS Safety Report 5935756-X (Version None)
Quarter: 2008Q4

REPORT INFORMATION
  Report Type: 
  Country: None (occurrence: None)
  Receive Date: 20081030
  Receipt Date: 20081023
  Transmission Date: 20090506
  Serious: Yes (Hospitalization)
  Sender: FDA-Public Use
  Company Number: JP-ASTRAZENECA-2006AP02700

PATIENT
  Age: 52 Year
  Sex: Female

DRUGS (1)
  1. IRESSA [Suspect]
     Indication: LUNG ADENOCARCINOMA
     Dosage: THE DOSE WAS HALVED SIX MONTHS LATER.
     Route: 048
     Dates: start: 20031101

REACTIONS (6)
  - ACNE [None]
  - ALOPECIA [None]
  - HEPATIC FUNCTION ABNORMAL [None]
  - IGA NEPHROPATHY [None]
  - OEDEMA PERIPHERAL [None]
  - TUBULOINTERSTITIAL NEPHRITIS [None]
